FAERS Safety Report 4513065-3 (Version None)
Quarter: 2004Q4

REPORT INFORMATION
  Report Type: 
  Country: None (occurrence: None)
  Receive Date: 20040928
  Receipt Date: 20040713
  Transmission Date: 20050328
  Serious: No
  Sender: FDA-Public Use
  Company Number: 04P-163-0266745-00

PATIENT
  Age: 44 Year
  Sex: Female
  Weight: 81.6475 kg

DRUGS (10)
  1. HUMIRA [Suspect]
     Indication: RHEUMATOID ARTHRITIS
     Dosage: 40 MG, 1 IN 2 WK, SUBCUTANEOUS
     Route: 058
     Dates: start: 20040611
  2. SERETIDE MITE [Concomitant]
  3. SINGULAIR [Concomitant]
  4. CONJUGATED ESTROGEN [Concomitant]
  5. LEXAPRO [Concomitant]
  6. ATORVASTATIN CALCIUM [Concomitant]
  7. OXYCONTIN [Concomitant]
  8. LANSOPRAZOLE [Concomitant]
  9. VOLTAREN [Concomitant]
  10. QUININE SULFATE [Concomitant]

REACTIONS (1)
  - FLUSHING [None]
